FAERS Safety Report 5735264-5 (Version None)
Quarter: 2008Q2

REPORT INFORMATION
  Report Type: 
  Country: None (occurrence: None)
  Receive Date: 20080512
  Receipt Date: 20080507
  Transmission Date: 20081010
  Serious: Yes (Life-Threatening, Hospitalization)
  Sender: FDA-Public Use
  Company Number: FR-JNJFOC-20080501457

PATIENT
  Age: 82 Year
  Sex: Female

DRUGS (7)
  1. OFLOCET [Suspect]
     Indication: GASTROENTERITIS
     Route: 048
  2. BACTRIM [Concomitant]
     Indication: GASTROENTERITIS
     Route: 048
  3. FENOFIBRATE [Concomitant]
     Route: 048
  4. AINS [Concomitant]
     Route: 048
  5. CALCIPARINE [Concomitant]
     Route: 048
  6. NEXIUM [Concomitant]
     Route: 048
  7. HALDOL [Concomitant]
     Route: 048

REACTIONS (5)
  - COMA [None]
  - CONVULSION [None]
  - RENAL FAILURE ACUTE [None]
  - RENAL TUBULAR NECROSIS [None]
  - VOMITING [None]
